FAERS Safety Report 4713218-5 (Version None)
Quarter: 2005Q3

REPORT INFORMATION
  Report Type: 
  Country: None (occurrence: None)
  Receive Date: 20050713
  Receipt Date: 20050708
  Transmission Date: 20060218
  Serious: Yes (Hospitalization)
  Sender: FDA-Public Use
  Company Number: FR-MERCK-0507FRA00031

PATIENT
  Age: 79 Year
  Sex: Female

DRUGS (2)
  1. VIOXX [Suspect]
     Route: 048
  2. FLECAINIDE ACETATE [Concomitant]
     Indication: ATRIAL FIBRILLATION
     Route: 048

REACTIONS (2)
  - CAROTID ARTERY ATHEROMA [None]
  - TRANSIENT ISCHAEMIC ATTACK [None]
